FAERS Safety Report 8557559-2 (Version None)
Quarter: 2012Q2

REPORT INFORMATION
  Report Type: 
  Country: None (occurrence: None)
  Receive Date: 20120418
  Receipt Date: 20100411
  Transmission Date: 20120825
  Serious: Yes (Other)
  Sender: FDA-Public Use
  Company Number: PHHY2010US23161

PATIENT
  Sex: Male

DRUGS (4)
  1. DIOVAN HCT [Suspect]
     Dosage: 160/12.5 MG, ORAL 320/12.5 MG, ORAL
     Route: 048
     Dates: start: 20100408
  2. UNSPECIFIED CARDIAC MEDICATIONS [Concomitant]
  3. NORVASC [Concomitant]
  4. ISORBIDE [Concomitant]

REACTIONS (5)
  - HEART RATE INCREASED [None]
  - HYPOTENSION [None]
  - FEELING ABNORMAL [None]
  - BLOOD PRESSURE INCREASED [None]
  - SYNCOPE [None]
